FAERS Safety Report 4404730-7 (Version None)
Quarter: 2004Q3

REPORT INFORMATION
  Report Type: 
  Country: None (occurrence: None)
  Receive Date: 20040722
  Receipt Date: 20040322
  Transmission Date: 20050211
  Serious: Yes (Hospitalization)
  Sender: FDA-Public Use
  Company Number: FR-GLAXOSMITHKLINE-B0327616A

PATIENT
  Age: 65 Year
  Sex: Female

DRUGS (2)
  1. SERETIDE DISKUS [Suspect]
     Dosage: 1PUFF TWICE PER DAY
     Route: 055
     Dates: start: 20040108, end: 20040213
  2. COMBIVENT [Concomitant]

REACTIONS (1)
  - RESPIRATORY FAILURE [None]
